FAERS Safety Report 10262848 (Version 2)
Quarter: 2014Q2

REPORT INFORMATION
  Report Type: Report from Study
  Country: US (occurrence: US)
  Receive Date: 20140626
  Receipt Date: 20140626
  Transmission Date: 20141212
  Serious: Yes (Other)
  Sender: FDA-Public Use
  Company Number: US-MYLANLABS-2013S1019253

PATIENT
  Age: 47 Year
  Sex: Male
  Weight: 86.18 kg

DRUGS (8)
  1. CLOZAPINE TABLETS [Suspect]
     Indication: SCHIZOPHRENIA, PARANOID TYPE
     Route: 048
     Dates: start: 20130110, end: 20130823
  2. CLOZAPINE TABLETS [Suspect]
     Indication: SCHIZOPHRENIA
     Route: 048
     Dates: start: 20130110, end: 20130823
  3. NICOTINE [Concomitant]
  4. COLACE [Concomitant]
  5. VITAMIN B [Concomitant]
  6. INDERAL [Concomitant]
  7. VISTARIL [Concomitant]
  8. MULTIVITAMIN [Concomitant]

REACTIONS (1)
  - Granulocytopenia [Recovered/Resolved]
